FAERS Safety Report 4815772-1 (Version None)
Quarter: 2005Q4

REPORT INFORMATION
  Report Type: 
  Country: None (occurrence: None)
  Receive Date: 20051031
  Receipt Date: 20051026
  Transmission Date: 20060501
  Serious: Yes (Other)
  Sender: FDA-Public Use
  Company Number: 1325151-O

PATIENT
  Sex: Male
  Weight: 71 kg

DRUGS (15)
  1. 506U78 [Suspect]
     Indication: ACUTE LYMPHOCYTIC LEUKAEMIA
     Dosage: 400MGM2 CYCLIC
     Route: 042
     Dates: start: 20050910
  2. VINCRISTINE [Suspect]
     Dosage: 1.5MGM2 CYCLIC
     Route: 042
  3. PREDNISONE [Suspect]
     Dosage: 60MGM2 CYCLIC
     Route: 048
  4. DAUNORUBICIN [Suspect]
     Dosage: 40MGM2 CYCLIC
     Route: 042
  5. ASPARAGINASE [Suspect]
     Dosage: 19205UNIT CYCLIC
     Route: 030
  6. CYCLOPHOSPHAMIDE [Suspect]
     Dosage: 1000MGM2 CYCLIC
     Route: 042
  7. CYTARABINE [Suspect]
     Dosage: 75MGM2 CYCLIC
     Route: 042
  8. MERCAPTOPURINE [Suspect]
     Dosage: 60MGM2 CYCLIC
     Route: 048
  9. METHOTREXATE [Suspect]
  10. CARAFATE [Concomitant]
  11. SEPTRA [Concomitant]
  12. ZANTAC [Concomitant]
  13. ATARAX [Concomitant]
  14. AMBIEN [Concomitant]
  15. ZOLOFT [Concomitant]

REACTIONS (8)
  - DIARRHOEA [None]
  - FATIGUE [None]
  - HYPOALBUMINAEMIA [None]
  - HYPONATRAEMIA [None]
  - MALAISE [None]
  - PITTING OEDEMA [None]
  - PLEURAL EFFUSION [None]
  - SOMNOLENCE [None]
